FAERS Safety Report 10750490 (Version 2)
Quarter: 2015Q1

REPORT INFORMATION
  Report Type: Spontaneous
  Country: US (occurrence: US)
  Receive Date: 20150130
  Receipt Date: 20150331
  Transmission Date: 20150721
  Serious: No
  Sender: FDA-Public Use
  Company Number: US-LEO PHARMA-231968

PATIENT
  Sex: Female

DRUGS (4)
  1. PICATO [Suspect]
     Active Substance: INGENOL MEBUTATE
     Indication: PRECANCEROUS SKIN LESION
     Route: 061
     Dates: start: 20141227, end: 20141227
  2. FLUOXETINE [Concomitant]
     Active Substance: FLUOXETINE\FLUOXETINE HYDROCHLORIDE
     Indication: PRODUCT USED FOR UNKNOWN INDICATION
  3. TRAZODONE [Concomitant]
     Active Substance: TRAZODONE HYDROCHLORIDE
     Indication: PRODUCT USED FOR UNKNOWN INDICATION
  4. LEVOTHYROXINE [Concomitant]
     Active Substance: LEVOTHYROXINE
     Indication: PRODUCT USED FOR UNKNOWN INDICATION

REACTIONS (7)
  - Application site swelling [Recovered/Resolved]
  - Treatment noncompliance [Unknown]
  - Application site erythema [Not Recovered/Not Resolved]
  - Application site paraesthesia [Recovered/Resolved]
  - Incorrect drug administration duration [Unknown]
  - Application site pruritus [Recovered/Resolved]
  - Application site vesicles [Recovered/Resolved]

NARRATIVE: CASE EVENT DATE: 20141227
